FAERS Safety Report 5828675-0 (Version None)
Quarter: 2008Q3

REPORT INFORMATION
  Report Type: 
  Country: None (occurrence: None)
  Receive Date: 20080731
  Receipt Date: 20080724
  Transmission Date: 20090109
  Serious: Yes (Other)
  Sender: FDA-Public Use
  Company Number: AU-ASTRAZENECA-2008AP04750

PATIENT
  Age: 22845 Day
  Sex: Male
  Weight: 90 kg

DRUGS (3)
  1. CRESTOR [Suspect]
     Indication: BLOOD CHOLESTEROL INCREASED
     Route: 048
     Dates: start: 20080606, end: 20080611
  2. IRBESARTAN [Concomitant]
     Indication: BLOOD PRESSURE
     Dates: start: 20060101
  3. ESCITALOPRAM [Concomitant]
     Indication: DEPRESSION
     Dates: start: 20071218

REACTIONS (1)
  - EXFOLIATIVE RASH [None]
